FAERS Safety Report 5601225-X (Version None)
Quarter: 2008Q1

REPORT INFORMATION
  Report Type: 
  Country: None (occurrence: None)
  Receive Date: 20080124
  Receipt Date: 20080123
  Transmission Date: 20080703
  Serious: Yes (Other)
  Sender: FDA-Public Use
  Company Number: A0705207A

PATIENT
  Sex: Male

DRUGS (2)
  1. NICORETTE (MINT) [Suspect]
     Indication: TOBACCO ABUSE
     Dosage: 14MG PER DAY
     Route: 002
     Dates: start: 20070101
  2. LEXAPRO [Concomitant]
     Dosage: 15MG PER DAY
     Route: 048

REACTIONS (3)
  - BLOOD GLUCOSE INCREASED [None]
  - DIABETES MELLITUS [None]
  - WEIGHT INCREASED [None]
